FAERS Safety Report 14819585 (Version 1)
Quarter: 2018Q2

REPORT INFORMATION
  Report Type: Spontaneous
  Country: US (occurrence: US)
  Receive Date: 20180427
  Receipt Date: 20180427
  Transmission Date: 20180711
  Serious: No
  Sender: FDA-Public Use
  Company Number: US-BAYER-2018-078721

PATIENT
  Age: 68 Year
  Sex: Female

DRUGS (1)
  1. EXTAVIA [Suspect]
     Active Substance: INTERFERON BETA-1B
     Indication: PRODUCT USED FOR UNKNOWN INDICATION
     Dosage: UNK
     Route: 058

REACTIONS (6)
  - Cough [Unknown]
  - Incorrect dose administered by device [Unknown]
  - Product physical issue [Unknown]
  - Sinusitis [Unknown]
  - Needle issue [Unknown]
  - Influenza [Unknown]
